FAERS Safety Report 11929999 (Version 2)
Quarter: 2016Q1

REPORT INFORMATION
  Report Type: Report from Study
  Country: BR (occurrence: BR)
  Receive Date: 20160120
  Receipt Date: 20160203
  Transmission Date: 20160526
  Serious: Yes (Other)
  Sender: FDA-Public Use
  Company Number: PHHY2016BR005685

PATIENT
  Age: 73 Year
  Sex: Male
  Weight: 62 kg

DRUGS (9)
  1. PANTOPRAZOLE [Concomitant]
     Active Substance: PANTOPRAZOLE SODIUM
     Indication: PROPHYLAXIS
     Dosage: 1 DF, QD (MORE THAN 10 YEARS AGO)
     Route: 048
  2. TEGRETOL CR [Suspect]
     Active Substance: CARBAMAZEPINE
     Dosage: 1 DF (200 MG), QD
     Route: 048
     Dates: start: 201510, end: 201511
  3. TEGRETOL CR [Suspect]
     Active Substance: CARBAMAZEPINE
     Indication: DIZZINESS
     Dosage: 0.5 DF (200 MG), QD
     Route: 048
     Dates: start: 201509, end: 201510
  4. CLOPIDOGREL [Concomitant]
     Active Substance: CLOPIDOGREL BISULFATE
     Indication: ANTICOAGULANT THERAPY
     Dosage: 1 DF, QD (STARTED MORE THAN 1 YEAR AGO)
     Route: 048
  5. PROCORALAN [Concomitant]
     Active Substance: IVABRADINE
     Indication: PRODUCT USED FOR UNKNOWN INDICATION
     Dosage: 2 DF, QD (STARTED APPROXIMATELY 2003)
     Route: 065
  6. TEGRETOL CR [Suspect]
     Active Substance: CARBAMAZEPINE
     Dosage: 1 DF (400 MG), QD
     Route: 048
     Dates: start: 201512
  7. ROSUCOR [Concomitant]
     Active Substance: ROSUVASTATIN CALCIUM
     Indication: ANTICOAGULANT THERAPY
     Dosage: 10 MG, QD (MORE THAN 1 YEAR AGO)
     Route: 048
  8. ALENIA//ESOMEPRAZOLE MAGNESIUM [Concomitant]
     Active Substance: ESOMEPRAZOLE MAGNESIUM
     Indication: ASTHMA
     Dosage: 2 DF, QD (MORE THAN 2 YEARS AGO) (12 UG+400UG)
     Route: 055
  9. TEGRETOL CR [Suspect]
     Active Substance: CARBAMAZEPINE
     Dosage: 1.5 DF (200 MG), QD
     Route: 048
     Dates: start: 201511, end: 201511

REACTIONS (4)
  - Fall [Recovering/Resolving]
  - Product use issue [Unknown]
  - Wrong technique in product usage process [Recovering/Resolving]
  - Femur fracture [Recovering/Resolving]

NARRATIVE: CASE EVENT DATE: 20160106
